FAERS Safety Report 17369263 (Version 1)
Quarter: 2020Q1

REPORT INFORMATION
  Report Type: Spontaneous
  Country: US (occurrence: US)
  Receive Date: 20200117
  Receipt Date: 20200117
  Transmission Date: 20200409
  Serious: Yes (Hospitalization)
  Sender: FDA-Public Use
  Company Number: None

PATIENT
  Age: 64 Year
  Sex: Female
  Weight: 57.5 kg

DRUGS (3)
  1. FLUDARABINE [Suspect]
     Active Substance: FLUDARABINE PHOSPHATE
  2. YESCARTA [Suspect]
     Active Substance: AXICABTAGENE CILOLEUCEL
  3. CYCLOPHOSPHAMIDE. [Suspect]
     Active Substance: CYCLOPHOSPHAMIDE

REACTIONS (8)
  - Tachycardia [None]
  - Dysgraphia [None]
  - Pyrexia [None]
  - Headache [None]
  - Fatigue [None]
  - Serum ferritin increased [None]
  - Tachypnoea [None]
  - Cytokine release syndrome [None]

NARRATIVE: CASE EVENT DATE: 20190708
